FAERS Safety Report 19537784 (Version 1)
Quarter: 2021Q3

REPORT INFORMATION
  Report Type: Spontaneous
  Country: US (occurrence: US)
  Receive Date: 20210714
  Receipt Date: 20210714
  Transmission Date: 20211014
  Serious: Yes (Death, Hospitalization)
  Sender: FDA-Public Use
  Company Number: None

PATIENT
  Sex: Male
  Weight: 13.1 kg

DRUGS (5)
  1. ONCASPAR [Suspect]
     Active Substance: PEGASPARGASE
  2. DEXAMETHASONE. [Suspect]
     Active Substance: DEXAMETHASONE
  3. CYTARABINE. [Concomitant]
     Active Substance: CYTARABINE
  4. VINCRISTINE SULFATE. [Concomitant]
     Active Substance: VINCRISTINE SULFATE
  5. METHOTREXATE. [Concomitant]
     Active Substance: METHOTREXATE

REACTIONS (6)
  - Facial paralysis [None]
  - General physical health deterioration [None]
  - Eyelid ptosis [None]
  - Muscular weakness [None]
  - Cerebral infarction [None]
  - Pupil fixed [None]

NARRATIVE: CASE EVENT DATE: 20210709
